FAERS Safety Report 8840464 (Version 1)
Quarter: 2012Q4

REPORT INFORMATION
  Report Type: 
  Country: JP (occurrence: JP)
  Receive Date: 20121015
  Receipt Date: 20121015
  Transmission Date: 20130627
  Serious: Yes (Other)
  Sender: FDA-Public Use
  Company Number: JP-ELI_LILLY_AND_COMPANY-JP201210001173

PATIENT
  Age: 44 Year
  Sex: Male

DRUGS (2)
  1. STRATTERA [Suspect]
     Indication: ATTENTION DEFICIT/HYPERACTIVITY DISORDER
     Dosage: UNK
     Route: 048
     Dates: start: 20120915, end: 20120928
  2. STRATTERA [Suspect]
     Dosage: UNK
     Route: 048
     Dates: start: 20120929

REACTIONS (1)
  - Liver function test abnormal [Unknown]
